FAERS Safety Report 13724920 (Version 13)
Quarter: 2018Q3

REPORT INFORMATION
  Report Type: Spontaneous
  Country: US (occurrence: US)
  Receive Date: 20170706
  Receipt Date: 20180801
  Transmission Date: 20181010
  Serious: Yes (Hospitalization, Other)
  Sender: FDA-Public Use
  Company Number: US-PFIZER INC-2017285970

PATIENT
  Age: 57 Year
  Sex: Female

DRUGS (7)
  1. OXYCODONE [Concomitant]
     Active Substance: OXYCODONE
     Indication: BACK PAIN
     Dosage: 2.5 MG, 1X/DAY (1/2 OF A 5 MG OXYCODONE AT BEDTIME; ONLY HAD 5 PILLS)
     Dates: start: 20170706
  2. VALSARTAN. [Concomitant]
     Active Substance: VALSARTAN
     Dosage: UNK
     Dates: start: 201708
  3. SUTENT [Suspect]
     Active Substance: SUNITINIB MALATE
     Indication: METASTATIC RENAL CELL CARCINOMA
     Dosage: 50 MG, CYCLIC (DAILY FOR 28 DAYS ON/14 DAYS OFF)
     Dates: start: 20170605, end: 20170704
  4. AMLODIPINE [Concomitant]
     Active Substance: AMLODIPINE BESYLATE
     Dosage: UNK
  5. LEVOTHYROXINE. [Concomitant]
     Active Substance: LEVOTHYROXINE
     Dosage: UNK
     Dates: start: 201708
  6. SUTENT [Suspect]
     Active Substance: SUNITINIB MALATE
     Dosage: 37.5 MG, CYCLIC (DAILY FOR 28 DAYS ON/14 DAYS OFF; 4 WEEKS 2 WEEKS OFF)
     Dates: start: 20170730
  7. LOTEMAX [Concomitant]
     Active Substance: LOTEPREDNOL ETABONATE
     Dosage: UNK

REACTIONS (40)
  - Intervertebral disc protrusion [Recovering/Resolving]
  - Asthenia [Recovering/Resolving]
  - Decreased appetite [Not Recovered/Not Resolved]
  - Nausea [Unknown]
  - Somnolence [Unknown]
  - Insomnia [Unknown]
  - Muscular weakness [Unknown]
  - Tooth disorder [Unknown]
  - Loss of personal independence in daily activities [Unknown]
  - Swelling face [Recovered/Resolved]
  - Anaemia [Unknown]
  - Blood pressure increased [Not Recovered/Not Resolved]
  - Hypoaesthesia [Unknown]
  - Peripheral coldness [Unknown]
  - Inflammation of lacrimal passage [Unknown]
  - Impatience [Unknown]
  - Confusional state [Unknown]
  - Presyncope [Unknown]
  - Nerve compression [Unknown]
  - Abdominal discomfort [Unknown]
  - Pain [Unknown]
  - Feeling abnormal [Recovered/Resolved]
  - Back pain [Recovering/Resolving]
  - Urinary tract infection [Unknown]
  - Flushing [Unknown]
  - Alopecia [Unknown]
  - Musculoskeletal stiffness [Unknown]
  - Movement disorder [Unknown]
  - Dysgeusia [Not Recovered/Not Resolved]
  - Dermatitis acneiform [Not Recovered/Not Resolved]
  - Acne [Not Recovered/Not Resolved]
  - Skin exfoliation [Not Recovered/Not Resolved]
  - Dizziness [Unknown]
  - Eye oedema [Unknown]
  - Eating disorder [Unknown]
  - Cardiac disorder [Recovered/Resolved]
  - Fatigue [Not Recovered/Not Resolved]
  - Skin disorder [Unknown]
  - Eye swelling [Unknown]
  - Heart rate increased [Unknown]

NARRATIVE: CASE EVENT DATE: 2017
